FAERS Safety Report 7343258-1 (Version None)
Quarter: 2011Q1

REPORT INFORMATION
  Report Type: 
  Country: None (occurrence: None)
  Receive Date: 20110310
  Receipt Date: 20110302
  Transmission Date: 20110831
  Serious: Yes (Other)
  Sender: FDA-Public Use
  Company Number: US-US-EMD SERONO, INC.-7045423

PATIENT
  Sex: Female

DRUGS (2)
  1. CLINDAMYCIN [Suspect]
     Indication: INFECTION
  2. REBIF [Suspect]
     Indication: PRODUCT USED FOR UNKNOWN INDICATION
     Route: 058
     Dates: start: 20110126, end: 20110101

REACTIONS (6)
  - INFECTION [None]
  - MUSCLE SPASMS [None]
  - TONGUE BLISTERING [None]
  - HOT FLUSH [None]
  - BLOOD PRESSURE DECREASED [None]
  - PAIN [None]
